FAERS Safety Report 8123681-8 (Version None)
Quarter: 2012Q1

REPORT INFORMATION
  Report Type: 
  Country: None (occurrence: None)
  Receive Date: 20120208
  Receipt Date: 20120206
  Transmission Date: 20120608
  Serious: Yes (Life-Threatening, Other)
  Sender: FDA-Public Use
  Company Number: PHHY2012FR010016

PATIENT

DRUGS (1)
  1. AFINITOR [Suspect]

REACTIONS (8)
  - ANAEMIA [None]
  - HYPERCHOLESTEROLAEMIA [None]
  - ADRENAL INSUFFICIENCY [None]
  - STOMATITIS [None]
  - HYPERGLYCAEMIA [None]
  - METASTASES TO BONE [None]
  - HYPERTRIGLYCERIDAEMIA [None]
  - INFECTION [None]
